FAERS Safety Report 6559929-0 (Version None)
Quarter: 2010Q1

REPORT INFORMATION
  Report Type: 
  Country: None (occurrence: None)
  Receive Date: 20100129
  Receipt Date: 20090915
  Transmission Date: 20100710
  Serious: No
  Sender: FDA-Public Use
  Company Number: US-ABBOTT-09P-163-0598046-00

PATIENT
  Sex: Male
  Weight: 68.1 kg

DRUGS (2)
  1. HUMIRA [Suspect]
     Indication: PSORIATIC ARTHROPATHY
     Route: 058
     Dates: start: 20070101, end: 20090301
  2. ANTIBIOTIC [Suspect]
     Indication: PNEUMONIA
     Dates: start: 20090301

REACTIONS (3)
  - PNEUMONIA [None]
  - PSORIATIC ARTHROPATHY [None]
  - RASH [None]
